FAERS Safety Report 17970207 (Version 2)
Quarter: 2020Q3

REPORT INFORMATION
  Report Type: Report from Study
  Country: None (occurrence: AR)
  Receive Date: 20200702
  Receipt Date: 20200801
  Transmission Date: 20201103
  Serious: Yes (Death, Hospitalization, Other)
  Sender: FDA-Public Use
  Company Number: AR-ABBVIE-20K-007-3407215-00

PATIENT
  Sex: Female

DRUGS (1)
  1. HUMIRA [Suspect]
     Active Substance: ADALIMUMAB
     Indication: RHEUMATOID ARTHRITIS
     Route: 058
     Dates: start: 20140108

REACTIONS (9)
  - Serum ferritin increased [Unknown]
  - Dyspnoea [Unknown]
  - Immunodeficiency [Unknown]
  - Platelet count decreased [Fatal]
  - Blood triglycerides increased [Unknown]
  - White blood cell count decreased [Fatal]
  - Diarrhoea [Unknown]
  - Haemophagocytic lymphohistiocytosis [Fatal]
  - Thrombocytopenia [Unknown]
